FAERS Safety Report 8303845-0 (Version None)
Quarter: 2012Q2

REPORT INFORMATION
  Report Type: 
  Country: None (occurrence: None)
  Receive Date: 20120423
  Receipt Date: 20120416
  Transmission Date: 20120825
  Serious: Yes (Hospitalization)
  Sender: FDA-Public Use
  Company Number: PHHY2012US032353

PATIENT
  Age: 35 Year
  Sex: Female

DRUGS (3)
  1. FEMARA [Suspect]
     Dosage: 5 MG, DAILY
  2. CHORIONIC GONADOTROPIN [Concomitant]
     Dosage: UNK
  3. CETRORELIX [Concomitant]
     Dosage: UNK

REACTIONS (2)
  - ABDOMINAL DISTENSION [None]
  - RESPIRATORY DISORDER [None]
